FAERS Safety Report 9668386 (Version 2)
Quarter: 2013Q4

REPORT INFORMATION
  Report Type: Report from Study
  Country: FR (occurrence: FR)
  Receive Date: 20131104
  Receipt Date: 20131118
  Transmission Date: 20140711
  Serious: Yes (Other)
  Sender: FDA-Public Use
  Company Number: PHHY2013FR123664

PATIENT
  Age: 87 Year
  Sex: Female

DRUGS (6)
  1. ACLASTA/ZOLEDRONATE [Suspect]
     Indication: OSTEOPOROSIS
     Dosage: UNK
     Route: 042
     Dates: start: 20110429
  2. ACLASTA/ZOLEDRONATE [Suspect]
     Dosage: UNK
     Route: 042
     Dates: start: 201205
  3. CORDARONE [Concomitant]
     Dosage: UNK
     Dates: start: 2006
  4. KARDEGIC [Concomitant]
     Dosage: UNK
     Dates: start: 2006
  5. APROVEL [Concomitant]
     Dosage: UNK
     Dates: start: 2011
  6. OROCAL [Concomitant]
     Dosage: UNK

REACTIONS (1)
  - Spinal fracture [Unknown]
